FAERS Safety Report 15788051 (Version 1)
Quarter: 2019Q1

REPORT INFORMATION
  Report Type: Other
  Country: ES (occurrence: ES)
  Receive Date: 20190104
  Receipt Date: 20190104
  Transmission Date: 20190417
  Serious: Yes (Other)
  Sender: FDA-Public Use
  Company Number: ES-MACLEODS PHARMACEUTICALS US LTD-MAC2018019429

PATIENT

DRUGS (1)
  1. ESCITALOPRAM OXALATE. [Suspect]
     Active Substance: ESCITALOPRAM OXALATE
     Indication: PRODUCT USED FOR UNKNOWN INDICATION
     Dosage: 30 MILLIGRAM, SINGLE, TOTAL
     Route: 048
     Dates: start: 201812, end: 201812

REACTIONS (2)
  - Hypotension [Unknown]
  - Medication error [Unknown]

NARRATIVE: CASE EVENT DATE: 201812
